FAERS Safety Report 17270048 (Version 1)
Quarter: 2020Q1

REPORT INFORMATION
  Report Type: Spontaneous
  Country: US (occurrence: US)
  Receive Date: 20200114
  Receipt Date: 20200114
  Transmission Date: 20200409
  Serious: No
  Sender: FDA-Public Use
  Company Number: NVSC2020US007121

PATIENT
  Sex: Female

DRUGS (1)
  1. COSENTYX [Suspect]
     Active Substance: SECUKINUMAB
     Indication: PRODUCT USED FOR UNKNOWN INDICATION
     Dosage: 300 MG, UNKNOWN
     Route: 065

REACTIONS (7)
  - Erythema [Unknown]
  - Paraesthesia oral [Unknown]
  - Pharyngeal swelling [Unknown]
  - Paraesthesia [Unknown]
  - Headache [Unknown]
  - Chest pain [Unknown]
  - Hypoaesthesia [Unknown]
